FAERS Safety Report 6899938-5 (Version None)
Quarter: 2010Q3

REPORT INFORMATION
  Report Type: 
  Country: None (occurrence: None)
  Receive Date: 20100708
  Receipt Date: 20090427
  Transmission Date: 20110219
  Serious: Yes (Other)
  Sender: FDA-Public Use
  Company Number: 2006146859

PATIENT
  Age: 56 Year
  Sex: Female
  Weight: 52.6 kg

DRUGS (8)
  1. CHANTIX [Suspect]
     Dosage: 0.5 MG, 1X/DAY, ORAL
     Route: 048
     Dates: start: 20061120
  2. SPIRIVA [Suspect]
     Indication: CHRONIC OBSTRUCTIVE PULMONARY DISEASE
     Dosage: DAILY, RESPIRATORY
     Route: 055
     Dates: start: 20061120
  3. ADVAIR (FLUTICASONE PROPIONATE, SALMETROL XINAFOATE) [Concomitant]
  4. OXYGEN (OXYEGN) [Concomitant]
  5. ALBUTEROL [Concomitant]
  6. ATROVENT [Concomitant]
  7. PREMARIN [Concomitant]
  8. MONTELUKAST SODIUM [Concomitant]

REACTIONS (3)
  - DYSPNOEA [None]
  - NAUSEA [None]
  - NERVOUSNESS [None]
